FAERS Safety Report 10046693 (Version 1)
Quarter: 2014Q1

REPORT INFORMATION
  Report Type: Report from Study
  Country: DE (occurrence: DE)
  Receive Date: 20140331
  Receipt Date: 20140331
  Transmission Date: 20141002
  Serious: Yes (Hospitalization)
  Sender: FDA-Public Use
  Company Number: DE-ROCHE-1373963

PATIENT
  Age: 55 Year
  Sex: Female
  Weight: 60.2 kg

DRUGS (5)
  1. BEVACIZUMAB [Suspect]
     Indication: BREAST CANCER
     Route: 065
     Dates: start: 20130315, end: 20130315
  2. BEVACIZUMAB [Suspect]
     Route: 065
     Dates: start: 20130419, end: 20130419
  3. PACLITAXEL [Concomitant]
     Indication: BREAST CANCER
     Route: 065
     Dates: start: 20130315
  4. PACLITAXEL [Concomitant]
     Route: 065
     Dates: start: 20130322
  5. PACLITAXEL [Concomitant]
     Route: 065
     Dates: start: 20130405

REACTIONS (1)
  - Fat necrosis [Recovered/Resolved]
